FAERS Safety Report 7414291-6 (Version None)
Quarter: 2011Q2

REPORT INFORMATION
  Report Type: 
  Country: None (occurrence: None)
  Receive Date: 20110411
  Receipt Date: 20110411
  Transmission Date: 20111010
  Serious: Yes (Other)
  Sender: FDA-Public Use
  Company Number: None

PATIENT
  Sex: Female
  Weight: 113.3993 kg

DRUGS (2)
  1. ALPRAZOLAM [Suspect]
     Indication: ANXIETY
     Dosage: 0.25 BID/PRN PO
     Route: 048
     Dates: start: 19850101, end: 20110408
  2. AUGMENTIN '875' [Suspect]
     Indication: SINUSITIS
     Dosage: 875 BID/PRN PO
     Route: 048

REACTIONS (2)
  - ABDOMINAL PAIN UPPER [None]
  - VOMITING [None]
